FAERS Safety Report 23902422 (Version 2)
Quarter: 2024Q2

REPORT INFORMATION
  Report Type: Spontaneous
  Country: IT (occurrence: IT)
  Receive Date: 20240527
  Receipt Date: 20240605
  Transmission Date: 20240716
  Serious: Yes (Death, Life-Threatening, Other)
  Sender: FDA-Public Use
  Company Number: None

PATIENT
  Age: 6 Year
  Sex: Female

DRUGS (31)
  1. MYCOPHENOLATE MOFETIL [Suspect]
     Active Substance: MYCOPHENOLATE MOFETIL
     Indication: Intestinal atony
     Dosage: UNK
     Route: 065
  2. TACROLIMUS [Suspect]
     Active Substance: TACROLIMUS
     Indication: Intestinal atony
     Dosage: UNK
     Route: 065
  3. METHYLPREDNISOLONE [Suspect]
     Active Substance: METHYLPREDNISOLONE
     Indication: Diarrhoea
     Dosage: 1 MILLIGRAM/KILOGRAM, ONCE WEEKLY
     Route: 065
  4. METHYLPREDNISOLONE [Suspect]
     Active Substance: METHYLPREDNISOLONE
     Indication: Vomiting
     Dosage: 0.5 MILLIGRAM/KILOGRAM TWICE A WEEK (BOLUS)
     Route: 065
  5. METHYLPREDNISOLONE [Suspect]
     Active Substance: METHYLPREDNISOLONE
     Indication: Weight decreased
  6. METHYLPREDNISOLONE [Suspect]
     Active Substance: METHYLPREDNISOLONE
     Indication: Abdominal pain
  7. BECLOMETHASONE DIPROPIONATE [Suspect]
     Active Substance: BECLOMETHASONE DIPROPIONATE
     Indication: Graft versus host disease in gastrointestinal tract
     Dosage: 4 MILLIGRAM/KILOGRAM, QD (MAXIMUM DOSAGE)
     Route: 065
  8. CYCLOPHOSPHAMIDE [Suspect]
     Active Substance: CYCLOPHOSPHAMIDE
     Indication: T-cell type acute leukaemia
     Dosage: 60 MILLIGRAM/SQ. METER, QD
     Route: 065
  9. CYCLOPHOSPHAMIDE [Suspect]
     Active Substance: CYCLOPHOSPHAMIDE
     Indication: Metastases to central nervous system
     Dosage: UNK
     Route: 065
  10. CYCLOSPORINE [Suspect]
     Active Substance: CYCLOSPORINE
     Indication: Prophylaxis against graft versus host disease
     Dosage: UNK
     Route: 065
  11. CYTARABINE [Suspect]
     Active Substance: CYTARABINE
     Indication: Leukaemia recurrent
     Dosage: UNK
     Route: 065
  12. CYTARABINE [Suspect]
     Active Substance: CYTARABINE
     Indication: Metastases to central nervous system
     Dosage: UNK
     Route: 037
  13. CYTARABINE [Suspect]
     Active Substance: CYTARABINE
     Indication: T-cell type acute leukaemia
     Dosage: UNK
     Route: 065
  14. DAUNORUBICIN [Suspect]
     Active Substance: DAUNORUBICIN
     Indication: Metastases to central nervous system
     Dosage: UNK
     Route: 065
  15. DAUNORUBICIN [Suspect]
     Active Substance: DAUNORUBICIN
     Indication: T-cell type acute leukaemia
  16. DEXAMETHASONE [Suspect]
     Active Substance: DEXAMETHASONE
     Indication: Metastases to central nervous system
     Dosage: UNK
     Route: 065
  17. DEXAMETHASONE [Suspect]
     Active Substance: DEXAMETHASONE
     Indication: T-cell type acute leukaemia
  18. FLUDARABINE [Suspect]
     Active Substance: FLUDARABINE PHOSPHATE
     Indication: Leukaemia recurrent
     Dosage: UNK
     Route: 065
  19. FLUDARABINE [Suspect]
     Active Substance: FLUDARABINE PHOSPHATE
     Indication: T-cell type acute leukaemia
  20. FLUDARABINE [Suspect]
     Active Substance: FLUDARABINE PHOSPHATE
     Indication: Metastases to central nervous system
  21. METHOTREXATE [Suspect]
     Active Substance: METHOTREXATE
     Indication: Leukaemia recurrent
     Dosage: UNK
     Route: 065
  22. METHOTREXATE [Suspect]
     Active Substance: METHOTREXATE
     Indication: Metastases to central nervous system
     Dosage: UNK (HIGH DOSE)
     Route: 037
  23. METHOTREXATE [Suspect]
     Active Substance: METHOTREXATE
     Indication: T-cell type acute leukaemia
     Dosage: UNK
     Route: 065
  24. METHOTREXATE [Suspect]
     Active Substance: METHOTREXATE
     Indication: Prophylaxis against graft versus host disease
     Dosage: UNK (SHORT TERM)
     Route: 065
  25. PREDNISONE [Suspect]
     Active Substance: PREDNISONE
     Indication: Graft versus host disease in skin
     Dosage: 1 MILLIGRAM/KILOGRAM, QD
     Route: 065
  26. PREDNISONE [Suspect]
     Active Substance: PREDNISONE
     Indication: T-cell type acute leukaemia
     Dosage: 5 MILLIGRAM/KILOGRAM, QD
     Route: 061
  27. PREDNISONE [Suspect]
     Active Substance: PREDNISONE
     Indication: Metastases to central nervous system
     Dosage: UNK
     Route: 037
  28. PREDNISONE [Suspect]
     Active Substance: PREDNISONE
     Indication: Leukaemia recurrent
     Dosage: UNK
     Route: 065
  29. ANTI-THYMOCYTE GLOBULIN (RABBIT) NOS [Suspect]
     Active Substance: LAPINE T-LYMPHOCYTE IMMUNE GLOBULIN
     Indication: Bone marrow conditioning regimen
     Dosage: 240 MILLIGRAM/SQ. METER, QD
     Route: 065
  30. VINCRISTINE [Suspect]
     Active Substance: VINCRISTINE
     Indication: T-cell type acute leukaemia
     Dosage: UNK
     Route: 065
  31. VINCRISTINE [Suspect]
     Active Substance: VINCRISTINE
     Indication: Metastases to central nervous system

REACTIONS (16)
  - Haemostasis [Fatal]
  - Intestinal atony [Fatal]
  - Cardiopulmonary failure [Fatal]
  - Cardiac arrest [Fatal]
  - Pneumatosis intestinalis [Fatal]
  - Pulmonary oedema [Fatal]
  - Seizure [Fatal]
  - Portal vein embolism [Fatal]
  - Trismus [Fatal]
  - Pulmonary embolism [Fatal]
  - Multiple organ dysfunction syndrome [Fatal]
  - Petechiae [Fatal]
  - Stasis syndrome [Fatal]
  - Gastric cyst [Fatal]
  - Functional gastrointestinal disorder [Fatal]
  - Therapy partial responder [Unknown]

NARRATIVE: CASE EVENT DATE: 20181101
